FAERS Safety Report 7649612-2 (Version None)
Quarter: 2011Q3

REPORT INFORMATION
  Report Type: 
  Country: None (occurrence: None)
  Receive Date: 20110802
  Receipt Date: 20110329
  Transmission Date: 20111222
  Serious: No
  Sender: FDA-Public Use
  Company Number: US-BAYER-2011-027528

PATIENT
  Sex: Female

DRUGS (2)
  1. PREDNISONE [Concomitant]
     Indication: TENDONITIS
  2. YAZ [Suspect]

REACTIONS (2)
  - POLYMENORRHOEA [None]
  - TENDONITIS [None]
